FAERS Safety Report 16058087 (Version 2)
Quarter: 2019Q1

REPORT INFORMATION
  Report Type: Report from Study
  Country: ES (occurrence: ES)
  Receive Date: 20190311
  Receipt Date: 20190319
  Transmission Date: 20190418
  Serious: Yes (Other)
  Sender: FDA-Public Use
  Company Number: ES-ROCHE-2279067

PATIENT

DRUGS (1)
  1. RITUXIMAB. [Suspect]
     Active Substance: RITUXIMAB
     Indication: RHEUMATOID ARTHRITIS
     Route: 065

REACTIONS (13)
  - Neutropenia [Unknown]
  - Respiratory tract infection [Unknown]
  - Septic shock [Unknown]
  - Malignant melanoma [Unknown]
  - Bacteraemia [Unknown]
  - Skin infection [Unknown]
  - Herpes zoster [Unknown]
  - Soft tissue infection [Unknown]
  - Gastrointestinal infection [Unknown]
  - Cervix carcinoma [Unknown]
  - Bladder cancer [Unknown]
  - Infusion related reaction [Unknown]
  - Urinary tract infection [Unknown]
